FAERS Safety Report 16057310 (Version 1)
Quarter: 2019Q1

REPORT INFORMATION
  Report Type: Spontaneous
  Country: US (occurrence: US)
  Receive Date: 20190311
  Receipt Date: 20190311
  Transmission Date: 20190418
  Serious: No
  Sender: FDA-Public Use
  Company Number: US-PFIZER INC-2019100368

PATIENT
  Age: 17 Year
  Sex: Male

DRUGS (2)
  1. GENOTROPIN [Suspect]
     Active Substance: SOMATROPIN
     Dosage: 2.2 MG, UNK (ALTERNATING DOSE OF 2MG  AND 2.2MG, 6 DAYS A WEEK)
  2. GENOTROPIN [Suspect]
     Active Substance: SOMATROPIN
     Dosage: 2 MG, UNK (ALTERNATING DOSE OF 2MG  AND 2.2MG, 6 DAYS A WEEK)
     Dates: start: 20180409

REACTIONS (1)
  - Insulin-like growth factor increased [Unknown]
